FAERS Safety Report 10980646 (Version 2)
Quarter: 2015Q2

REPORT INFORMATION
  Report Type: Spontaneous
  Country: US (occurrence: US)
  Receive Date: 20150402
  Receipt Date: 20150525
  Transmission Date: 20150821
  Serious: No
  Sender: FDA-Public Use
  Company Number: US-JNJFOC-20140614329

PATIENT
  Sex: Female
  Weight: 65.32 kg

DRUGS (4)
  1. IMODIUM A-D [Suspect]
     Active Substance: LOPERAMIDE HYDROCHLORIDE
     Indication: DIARRHOEA
     Dosage: HALF CAPLET
     Route: 048
  2. IMODIUM A-D [Suspect]
     Active Substance: LOPERAMIDE HYDROCHLORIDE
     Route: 048
  3. LYRICA [Concomitant]
     Active Substance: PREGABALIN
     Indication: SLEEP DISORDER
     Route: 065
  4. AMOXICILLIN. [Concomitant]
     Active Substance: AMOXICILLIN
     Indication: STREPTOCOCCAL INFECTION
     Route: 065

REACTIONS (1)
  - Wrong technique in drug usage process [Unknown]
